FAERS Safety Report 8949919 (Version 3)
Quarter: 2013Q4

REPORT INFORMATION
  Report Type: Spontaneous
  Country: US (occurrence: US)
  Receive Date: 20121205
  Receipt Date: 20131111
  Transmission Date: 20140711
  Serious: Yes (Hospitalization, Other)
  Sender: FDA-Public Use
  Company Number: US-009507513-1212USA001672

PATIENT
  Sex: Female

DRUGS (12)
  1. FOSAMAX [Suspect]
     Indication: OSTEOPENIA
     Dosage: 10 MG, QD
     Route: 048
     Dates: start: 199805, end: 200110
  2. FOSAMAX [Suspect]
     Indication: OSTEOPOROSIS
     Dosage: 70 MG, QW
     Route: 048
     Dates: start: 200111
  3. FOSAMAX PLUS D [Suspect]
     Indication: OSTEOPENIA
     Dosage: 70MG/2,800IU, QW
     Route: 048
     Dates: start: 200505, end: 201011
  4. FOSAMAX PLUS D [Suspect]
     Indication: OSTEOPOROSIS
  5. VITAMINS (UNSPECIFIED) [Concomitant]
     Dosage: UNK, QD
     Dates: start: 1990
  6. ASCORBIC ACID [Concomitant]
     Dosage: 1000 MG, TID
     Dates: start: 1990
  7. VITAMIN E [Concomitant]
     Dosage: 400 IU, QD
     Dates: start: 1990
  8. VITAMIN B (UNSPECIFIED) [Concomitant]
     Dosage: 1 MG, QD
     Dates: start: 1990
  9. CALCIUM (UNSPECIFIED) (+) VITAMIN D (UNSPECIFIED) [Concomitant]
     Dosage: 500 MG, BID/200IU VITD
     Dates: start: 1990
  10. CHOLECALCIFEROL [Concomitant]
     Dosage: 1000 IU, QD
     Dates: start: 1990
  11. HORMONES (UNSPECIFIED) [Concomitant]
     Dosage: UNK
     Dates: start: 1970, end: 2010
  12. CORTICOSTEROIDS (UNSPECIFIED) [Concomitant]
     Dosage: UNK
     Dates: start: 2005, end: 201305

REACTIONS (7)
  - Femur fracture [Recovering/Resolving]
  - Intramedullary rod insertion [Unknown]
  - Vaginal cancer [Unknown]
  - Breast cancer [Unknown]
  - Radiotherapy [Unknown]
  - Chemotherapy [Unknown]
  - Insomnia [Unknown]
